FAERS Safety Report 11813200 (Version 1)
Quarter: 2015Q4

REPORT INFORMATION
  Report Type: Spontaneous
  Country: US (occurrence: US)
  Receive Date: 20151209
  Receipt Date: 20151209
  Transmission Date: 20160305
  Serious: Yes (Death)
  Sender: FDA-Public Use
  Company Number: US-UNITED THERAPEUTICS-UNT-2015-015450

PATIENT
  Age: 82 Year
  Sex: Male
  Weight: 81.63 kg

DRUGS (1)
  1. TYVASO [Suspect]
     Active Substance: TREPROSTINIL
     Indication: PULMONARY HYPERTENSION
     Dosage: 18-54 ?G QID
     Dates: start: 20130115

REACTIONS (1)
  - Death [Fatal]

NARRATIVE: CASE EVENT DATE: 20151201
